FAERS Safety Report 16782697 (Version 1)
Quarter: 2019Q3

REPORT INFORMATION
  Report Type: Spontaneous
  Country: US (occurrence: US)
  Receive Date: 20190906
  Receipt Date: 20190906
  Transmission Date: 20191005
  Serious: No
  Sender: FDA-Public Use
  Company Number: US-SA-2019SA244285

PATIENT
  Sex: Female

DRUGS (15)
  1. LISINOPRIL. [Concomitant]
     Active Substance: LISINOPRIL
  2. METFORMIN [Concomitant]
     Active Substance: METFORMIN HYDROCHLORIDE
  3. METHOTREXATE. [Concomitant]
     Active Substance: METHOTREXATE
  4. MELOXICAM. [Concomitant]
     Active Substance: MELOXICAM
  5. HYDROCODONE BITARTRATE AND ACETAMINOPHEN [Concomitant]
     Active Substance: ACETAMINOPHEN\HYDROCODONE BITARTRATE
  6. KEVZARA [Suspect]
     Active Substance: SARILUMAB
     Dosage: 200 MG, QOW
     Route: 058
     Dates: start: 201903
  7. OMEPRAZOLE. [Concomitant]
     Active Substance: OMEPRAZOLE
  8. ROPINIROLE. [Concomitant]
     Active Substance: ROPINIROLE
  9. TRAMADOL HCL [Concomitant]
     Active Substance: TRAMADOL HYDROCHLORIDE
  10. BACLOFEN. [Suspect]
     Active Substance: BACLOFEN
  11. ONDANSETRON [Concomitant]
     Active Substance: ONDANSETRON
  12. SIMVASTATIN. [Concomitant]
     Active Substance: SIMVASTATIN
  13. FOLIC ACID. [Concomitant]
     Active Substance: FOLIC ACID
  14. HUMIRA [Concomitant]
     Active Substance: ADALIMUMAB
  15. TRUE TEST [Concomitant]

REACTIONS (4)
  - Hypersomnia [Recovered/Resolved]
  - Dizziness [Recovered/Resolved]
  - Blood glucose decreased [Recovered/Resolved]
  - Erythema [Recovered/Resolved]
